FAERS Safety Report 25618835 (Version 5)
Quarter: 2025Q3

REPORT INFORMATION
  Report Type: Spontaneous
  Country: EU (occurrence: EU)
  Receive Date: 20250729
  Receipt Date: 20250902
  Transmission Date: 20251021
  Serious: Yes (Hospitalization, Other)
  Sender: SANDOZ
  Company Number: None

PATIENT
  Age: 36 Year
  Sex: Female

DRUGS (6)
  1. GLATIRAMER ACETATE [Suspect]
     Active Substance: GLATIRAMER ACETATE
     Indication: Relapsing-remitting multiple sclerosis
     Route: 058
     Dates: end: 202110
  2. TERIFLUNOMIDE [Suspect]
     Active Substance: TERIFLUNOMIDE
     Indication: Relapsing-remitting multiple sclerosis
     Dosage: 14 MG DAILY/ QD (PER DAY) ??-OCT-2021
     Route: 048
     Dates: end: 202311
  3. TERIFLUNOMIDE [Suspect]
     Active Substance: TERIFLUNOMIDE
     Indication: Product used for unknown indication
     Dosage: 14 MG, QD
     Route: 048
     Dates: start: 202110, end: 202311
  4. TERIFLUNOMIDE [Suspect]
     Active Substance: TERIFLUNOMIDE
     Indication: Multiple sclerosis
     Route: 065
  5. METHYLPREDNISOLONE [Concomitant]
     Active Substance: METHYLPREDNISOLONE
     Indication: Diplopia
     Route: 042
     Dates: start: 2018
  6. RIFAXIMIN [Concomitant]
     Active Substance: RIFAXIMIN
     Indication: Diarrhoea
     Dosage: 200 MG, Q6H
     Route: 065
     Dates: start: 202309

REACTIONS (7)
  - Colitis ulcerative [Unknown]
  - Adverse drug reaction [Unknown]
  - Disease progression [Unknown]
  - Relapsing multiple sclerosis [Unknown]
  - Injection site reaction [Unknown]
  - Injection site swelling [Unknown]
  - Diarrhoea [Recovered/Resolved]

NARRATIVE: CASE EVENT DATE: 20180101
